FAERS Safety Report 20543189 (Version 1)
Quarter: 2022Q1

REPORT INFORMATION
  Report Type: Spontaneous
  Country: US (occurrence: US)
  Receive Date: 20220302
  Receipt Date: 20220302
  Transmission Date: 20220423
  Serious: No
  Sender: FDA-Public Use
  Company Number: US-PFIZER INC-202200012096

PATIENT
  Age: 75 Year
  Sex: Male

DRUGS (3)
  1. INLYTA [Suspect]
     Active Substance: AXITINIB
     Dosage: 5 MG
     Dates: start: 20211231
  2. INLYTA [Suspect]
     Active Substance: AXITINIB
     Dosage: 5 MG
     Dates: start: 20211201
  3. INLYTA [Suspect]
     Active Substance: AXITINIB
     Dosage: 5 MG
     Dates: start: 20220103

REACTIONS (7)
  - Insomnia [Unknown]
  - Decreased appetite [Unknown]
  - Stomatitis [Unknown]
  - Amnesia [Unknown]
  - Dry mouth [Unknown]
  - Gingival pain [Unknown]
  - Diarrhoea [Unknown]
